FAERS Safety Report 7476200-3 (Version None)
Quarter: 2011Q2

REPORT INFORMATION
  Report Type: 
  Country: None (occurrence: None)
  Receive Date: 20110505
  Receipt Date: 20110425
  Transmission Date: 20111010
  Serious: Yes (Other)
  Sender: FDA-Public Use
  Company Number: 2011SP001352

PATIENT

DRUGS (1)
  1. LATUDA [Suspect]
     Dosage: ORAL
     Route: 048
     Dates: start: 20110101

REACTIONS (3)
  - CONFUSIONAL STATE [None]
  - AMNESIA [None]
  - AMMONIA INCREASED [None]
